FAERS Safety Report 17456726 (Version 1)
Quarter: 2020Q1

REPORT INFORMATION
  Report Type: Spontaneous
  Country: US (occurrence: US)
  Receive Date: 20200225
  Receipt Date: 20200225
  Transmission Date: 20200409
  Serious: Yes (Death, Hospitalization)
  Sender: FDA-Public Use
  Company Number: US-MYLANLABS-2020M1018823

PATIENT
  Age: 32 Year
  Sex: Male

DRUGS (1)
  1. BUPROPION. [Suspect]
     Active Substance: BUPROPION
     Indication: PRODUCT USED FOR UNKNOWN INDICATION
     Dosage: TWO HANDFULS OF BUPROPION 150MG TABLETS
     Route: 065

REACTIONS (6)
  - Intentional overdose [Fatal]
  - Seizure [Fatal]
  - Shock [Fatal]
  - Congestive cardiomyopathy [Fatal]
  - Ventricular hypokinesia [Fatal]
  - Completed suicide [Fatal]
